FAERS Safety Report 8328912-7 (Version None)
Quarter: 2012Q2

REPORT INFORMATION
  Report Type: 
  Country: None (occurrence: None)
  Receive Date: 20120502
  Receipt Date: 20100921
  Transmission Date: 20120825
  Serious: No
  Sender: FDA-Public Use
  Company Number: US-TEVA-2010005053

PATIENT
  Sex: Female
  Weight: 85.806 kg

DRUGS (5)
  1. NUVIGIL [Suspect]
     Indication: CIRCADIAN RHYTHM SLEEP DISORDER
     Dosage: 75 MILLIGRAM;
     Route: 048
     Dates: start: 20100621
  2. LEXAPRO [Concomitant]
     Indication: DEPRESSION
     Dates: start: 20100101, end: 20100907
  3. LEXAPRO [Concomitant]
     Indication: ANXIETY
  4. UNITHROID [Concomitant]
     Indication: HYPOTHYROIDISM
     Dates: start: 19940102
  5. DOXYCYCLINE [Concomitant]
     Indication: LYME DISEASE
     Dates: start: 20100211, end: 20100907

REACTIONS (3)
  - OEDEMA PERIPHERAL [None]
  - FEELING ABNORMAL [None]
  - EXTRASYSTOLES [None]
